FAERS Safety Report 24218263 (Version 1)
Quarter: 2024Q3

REPORT INFORMATION
  Report Type: Spontaneous
  Country: AT (occurrence: AT)
  Receive Date: 20240816
  Receipt Date: 20240816
  Transmission Date: 20241017
  Serious: Yes (Other)
  Sender: TEVA
  Company Number: AT-TEVA-VS-3219034

PATIENT
  Age: 41 Year
  Sex: Female

DRUGS (2)
  1. AJOVY [Suspect]
     Active Substance: FREMANEZUMAB-VFRM
     Indication: Migraine
     Route: 065
     Dates: start: 202403, end: 202407
  2. ZOLMITRIPTAN [Concomitant]
     Active Substance: ZOLMITRIPTAN
     Indication: Product used for unknown indication
     Dosage: 2.5 MG AS NEEDED

REACTIONS (1)
  - Terminal ileitis [Recovering/Resolving]

NARRATIVE: CASE EVENT DATE: 20240101
